FAERS Safety Report 7750182-9 (Version None)
Quarter: 2011Q3

REPORT INFORMATION
  Report Type: 
  Country: None (occurrence: None)
  Receive Date: 20110914
  Receipt Date: 20110914
  Transmission Date: 20111222
  Serious: Yes (Life-Threatening, Other)
  Sender: FDA-Public Use
  Company Number: None

PATIENT
  Sex: Female
  Weight: 50.802 kg

DRUGS (1)
  1. KENALOG [Suspect]
     Indication: ARTHRITIS
     Dosage: ONE INJECTION
     Dates: start: 20110908, end: 20110908

REACTIONS (1)
  - ANAPHYLACTIC SHOCK [None]
